FAERS Safety Report 23613777 (Version 7)
Quarter: 2024Q2

REPORT INFORMATION
  Report Type: Spontaneous
  Country: ES (occurrence: ES)
  Receive Date: 20240310
  Receipt Date: 20240605
  Transmission Date: 20240715
  Serious: Yes (Life-Threatening, Hospitalization, Other)
  Sender: FDA-Public Use
  Company Number: ES-AUROBINDO-AUR-APL-2024-011100

PATIENT
  Age: 78 Year
  Sex: Female
  Weight: 60 kg

DRUGS (13)
  1. AMOXICILLIN\CLAVULANIC ACID [Interacting]
     Active Substance: AMOXICILLIN\CLAVULANIC ACID
     Indication: Soft tissue infection
     Dosage: 1 DOSAGE FORM OF 875/125 MILLIGRAM , 3 TIMES A DAY PILL
     Route: 048
     Dates: start: 20220808, end: 20220814
  2. AMOXICILLIN\CLAVULANIC ACID [Interacting]
     Active Substance: AMOXICILLIN\CLAVULANIC ACID
     Indication: Localised infection
  3. AMOXICILLIN\CLAVULANIC ACID [Interacting]
     Active Substance: AMOXICILLIN\CLAVULANIC ACID
     Indication: Serotonin syndrome
  4. DULOXETINE [Interacting]
     Active Substance: DULOXETINE
     Indication: Depression
     Dosage: 60 MILLIGRAM, ONCE A DAY
     Route: 065
  5. FENTANYL TRANSDERMAL SYSTEM [Interacting]
     Active Substance: FENTANYL
     Indication: Osteoarthritis
     Dosage: 100 MICROGRAM, TRANSDERMIC EVERY 72 HOURS
     Route: 062
  6. FENTANYL TRANSDERMAL SYSTEM [Interacting]
     Active Substance: FENTANYL
     Dosage: 100 MICROGRAM
     Route: 058
  7. PREGABALIN [Suspect]
     Active Substance: PREGABALIN
     Indication: Serotonin syndrome
     Dosage: 25 MILLIGRAM, TWO TIMES A DAY (1-0-1) (LONG-TERM TREATMENT)
     Route: 065
  8. PREGABALIN [Suspect]
     Active Substance: PREGABALIN
     Indication: Depression
  9. TRAZODONE [Interacting]
     Active Substance: TRAZODONE HYDROCHLORIDE
     Indication: Depression
     Dosage: 100 MILLIGRAM, ONCE A DAY (0-0-1)
     Route: 065
  10. DULOXETINE [Concomitant]
     Active Substance: DULOXETINE
     Indication: Product used for unknown indication
     Dosage: 60 MILLIGRAM, ONCE A DAY (1-0-0)
     Route: 065
  11. FENTANYL [Concomitant]
     Active Substance: FENTANYL\FENTANYL CITRATE
     Indication: Serotonin syndrome
     Dosage: 100 MICROGRAM
     Route: 062
  12. TRAZODONE [Concomitant]
     Active Substance: TRAZODONE HYDROCHLORIDE
     Indication: Serotonin syndrome
     Dosage: 100 MILLIGRAM, ONCE A DAY
     Route: 065
  13. PREGABALIN [Concomitant]
     Active Substance: PREGABALIN
     Indication: Depression
     Dosage: UNK
     Route: 065

REACTIONS (14)
  - Serotonin syndrome [Recovered/Resolved]
  - Drug interaction [Unknown]
  - Abnormal behaviour [Recovered/Resolved]
  - Clonus [Recovered/Resolved]
  - Dry mouth [Recovered/Resolved]
  - Hyperhidrosis [Recovered/Resolved]
  - Hyperreflexia [Recovered/Resolved]
  - Hypertonia [Recovered/Resolved]
  - Muscle rigidity [Recovered/Resolved]
  - Psychomotor hyperactivity [Recovered/Resolved]
  - Sinus tachycardia [Recovered/Resolved]
  - Somnolence [Recovered/Resolved]
  - Treatment noncompliance [Unknown]
  - Medication error [Unknown]

NARRATIVE: CASE EVENT DATE: 20220809
